FAERS Safety Report 12507351 (Version 1)
Quarter: 2016Q2

REPORT INFORMATION
  Report Type: Spontaneous
  Country: IT (occurrence: IT)
  Receive Date: 20160629
  Receipt Date: 20160629
  Transmission Date: 20160815
  Serious: Yes (Other)
  Sender: FDA-Public Use
  Company Number: IT-ACCORD-041846

PATIENT
  Age: 55 Year
  Sex: Female

DRUGS (2)
  1. HERCEPTIN [Concomitant]
     Active Substance: TRASTUZUMAB
     Indication: BREAST CANCER
     Dosage: STRENGTH: 150 MG?MAH: ROCHE REGISTRATION LIMITED
     Route: 042
     Dates: start: 20160615, end: 20160615
  2. PACLITAXEL ACCORD [Suspect]
     Active Substance: PACLITAXEL
     Indication: BREAST CANCER
     Dosage: STRENGTH: 6 MG/ML?DRUG WAS REINTRODUCED.
     Route: 042
     Dates: start: 20160615, end: 20160615

REACTIONS (4)
  - Hyperhidrosis [Recovered/Resolved]
  - Feeling hot [Recovered/Resolved]
  - Hypersensitivity [Recovered/Resolved]
  - Band sensation [Recovered/Resolved]

NARRATIVE: CASE EVENT DATE: 20160615
